FAERS Safety Report 4884088-X (Version None)
Quarter: 2005Q4

REPORT INFORMATION
  Report Type: 
  Country: None (occurrence: None)
  Receive Date: 20051201
  Receipt Date: 20050906
  Transmission Date: 20060501
  Serious: No
  Sender: FDA-Public Use
  Company Number: 2005PV001889

PATIENT
  Age: 67 Year
  Sex: Female
  Weight: 126.1 kg

DRUGS (12)
  1. BYETTA [Suspect]
     Indication: DIABETES MELLITUS NON-INSULIN-DEPENDENT
     Dosage: 5 MCG; BID; SC
     Route: 058
     Dates: start: 20050817
  2. BONEVA [Concomitant]
  3. GLUCOTROL XL [Concomitant]
  4. ACTOS [Concomitant]
  5. AVAPRO [Concomitant]
  6. METOPROLOL [Concomitant]
  7. PLAVIX [Concomitant]
  8. SYNTHROID [Concomitant]
  9. FUROSEMIDE [Concomitant]
  10. ASPIRIN [Concomitant]
  11. CALCIUM GLUCONATE [Concomitant]
  12. FOLBIC [Concomitant]

REACTIONS (5)
  - BACK PAIN [None]
  - CONDITION AGGRAVATED [None]
  - DIZZINESS [None]
  - HEADACHE [None]
  - WEIGHT DECREASED [None]
